FAERS Safety Report 14639188 (Version 1)
Quarter: 2018Q1

REPORT INFORMATION
  Report Type: Spontaneous
  Country: US (occurrence: US)
  Receive Date: 20180315
  Receipt Date: 20180315
  Transmission Date: 20180509
  Serious: No
  Sender: FDA-Public Use
  Company Number: US-ENDO PHARMACEUTICALS INC-2017-004291

PATIENT
  Age: 75 Year
  Sex: Male

DRUGS (1)
  1. DUTASTERIDE AND TAMSULOSIN HYDROCHLORIDE [Suspect]
     Active Substance: DUTASTERIDE\TAMSULOSIN HYDROCHLORIDE
     Indication: PROSTATIC DISORDER
     Dosage: UNK UNK, UNKNOWN
     Route: 048
     Dates: start: 201707

REACTIONS (1)
  - Foreign body in respiratory tract [Unknown]

NARRATIVE: CASE EVENT DATE: 201707
